APPROVED DRUG PRODUCT: MEPIVACAINE HYDROCHLORIDE
Active Ingredient: MEPIVACAINE HYDROCHLORIDE
Strength: 2%
Dosage Form/Route: INJECTABLE;INJECTION
Application: A088770 | Product #001
Applicant: WATSON LABORATORIES INC
Approved: Nov 20, 1984 | RLD: No | RS: No | Type: DISCN